FAERS Safety Report 23865011 (Version 1)
Quarter: 2024Q2

REPORT INFORMATION
  Report Type: Spontaneous
  Country: US (occurrence: US)
  Receive Date: 20240516
  Receipt Date: 20240516
  Transmission Date: 20240716
  Serious: No
  Sender: FDA-Public Use
  Company Number: US-CIPLA LTD.-2023US06369

PATIENT

DRUGS (2)
  1. ALBUTEROL [Suspect]
     Active Substance: ALBUTEROL
     Indication: Cough
     Dosage: 180 MICROGRAM, PRN (2 PUFFS- 180 MCG, PRN (EVERY 4 HOURS AS NEEDED)
     Route: 048
     Dates: start: 2022
  2. ALBUTEROL [Suspect]
     Active Substance: ALBUTEROL
     Indication: Wheezing
     Dosage: 180 MICROGRAM, PRN 2 PUFFS- 180 MCG, PRN (EVERY 4 HOURS AS NEEDED)
     Route: 048
     Dates: start: 20230920

REACTIONS (8)
  - Respiratory disorder [Unknown]
  - Off label use [Unknown]
  - Product taste abnormal [Unknown]
  - Device malfunction [Unknown]
  - Device delivery system issue [Unknown]
  - Product quality issue [Unknown]
  - Product size issue [Unknown]
  - Product cleaning inadequate [Unknown]

NARRATIVE: CASE EVENT DATE: 20220101
